FAERS Safety Report 16901357 (Version 1)
Quarter: 2019Q4

REPORT INFORMATION
  Report Type: Report from Study
  Country: None (occurrence: CA)
  Receive Date: 20191009
  Receipt Date: 20191009
  Transmission Date: 20200122
  Serious: Yes (Other)
  Sender: FDA-Public Use
  Company Number: CA-ABBVIE-19K-028-2951669-00

PATIENT
  Sex: Male

DRUGS (1)
  1. HUMIRA [Suspect]
     Active Substance: ADALIMUMAB
     Indication: CROHN^S DISEASE
     Route: 058
     Dates: start: 20110607

REACTIONS (9)
  - Tongue eruption [Not Recovered/Not Resolved]
  - Medical device site ulcer [Unknown]
  - Chronic obstructive pulmonary disease [Unknown]
  - Type 1 diabetes mellitus [Not Recovered/Not Resolved]
  - Respiratory disorder [Not Recovered/Not Resolved]
  - Dental prosthesis placement [Unknown]
  - Heart rate increased [Not Recovered/Not Resolved]
  - Tongue eruption [Recovered/Resolved]
  - Hypertension [Not Recovered/Not Resolved]

NARRATIVE: CASE EVENT DATE: 2015
